FAERS Safety Report 21083039 (Version 2)
Quarter: 2022Q3

REPORT INFORMATION
  Report Type: Spontaneous
  Country: CA (occurrence: None)
  Receive Date: 20220714
  Receipt Date: 20220718
  Transmission Date: 20221027
  Serious: Yes (Other)
  Sender: FDA-Public Use
  Company Number: CA-PFIZER INC-202200944235

PATIENT
  Age: 15 Year
  Sex: Male

DRUGS (7)
  1. METHOTREXATE [Suspect]
     Active Substance: METHOTREXATE
     Indication: Product used for unknown indication
     Route: 065
     Dates: start: 201602, end: 201702
  2. METHOTREXATE [Suspect]
     Active Substance: METHOTREXATE
     Route: 065
     Dates: start: 201804, end: 202008
  3. METHOTREXATE [Suspect]
     Active Substance: METHOTREXATE
     Dosage: 1 DF, DOSE: 12.5MG
     Route: 065
     Dates: start: 202008, end: 202011
  4. METHOTREXATE [Suspect]
     Active Substance: METHOTREXATE
     Route: 065
     Dates: start: 202011
  5. METHOTREXATE [Suspect]
     Active Substance: METHOTREXATE
     Dosage: DOSE: 17.5 MG
     Route: 065
  6. METHOTREXATE [Suspect]
     Active Substance: METHOTREXATE
     Route: 065
     Dates: start: 202010
  7. METHOTREXATE [Suspect]
     Active Substance: METHOTREXATE
     Dosage: DOSE: 17.5 MG
     Route: 058
     Dates: start: 2016, end: 20220703

REACTIONS (6)
  - Nausea [Unknown]
  - Osteochondrosis [Recovered/Resolved]
  - Gastrointestinal disorder [Unknown]
  - Joint swelling [Unknown]
  - Juvenile idiopathic arthritis [Unknown]
  - Arthralgia [Recovered/Resolved]

NARRATIVE: CASE EVENT DATE: 20210201
